FAERS Safety Report 22247354 (Version 1)
Quarter: 2023Q2

REPORT INFORMATION
  Report Type: Spontaneous
  Country: US (occurrence: US)
  Receive Date: 20230425
  Receipt Date: 20230425
  Transmission Date: 20230722
  Serious: No
  Sender: FDA-Public Use
  Company Number: US-SUN PHARMACEUTICAL INDUSTRIES LTD-2022R1-368774

PATIENT
  Sex: Female

DRUGS (2)
  1. LEUPROLIDE [Suspect]
     Active Substance: LEUPROLIDE
     Indication: In vitro fertilisation
     Dosage: UNK
     Route: 030
     Dates: start: 20221118, end: 20221119
  2. LEUPROLIDE [Suspect]
     Active Substance: LEUPROLIDE
     Dosage: UNK
     Route: 058
     Dates: start: 20221118, end: 20221119

REACTIONS (1)
  - Drug ineffective for unapproved indication [Unknown]
